FAERS Safety Report 7109792-4 (Version None)
Quarter: 2010Q4

REPORT INFORMATION
  Report Type: 
  Country: None (occurrence: None)
  Receive Date: 20101116
  Receipt Date: 20101116
  Transmission Date: 20110411
  Serious: Yes (Hospitalization)
  Sender: FDA-Public Use
  Company Number: None

PATIENT
  Age: 42 Year
  Sex: Male

DRUGS (3)
  1. TRIHEXYPHENIDYL [Suspect]
     Indication: TREMOR
     Dosage: 15 MG PO
     Route: 048
     Dates: start: 20100902, end: 20101006
  2. PALIPERIDONE [Concomitant]
  3. CLOZAPINE [Concomitant]

REACTIONS (3)
  - DELIRIUM [None]
  - DELUSION [None]
  - PSYCHOTIC DISORDER [None]
